FAERS Safety Report 9660855 (Version 1)
Quarter: 2013Q4

REPORT INFORMATION
  Report Type: Spontaneous
  Country: US (occurrence: US)
  Receive Date: 20131031
  Receipt Date: 20131031
  Transmission Date: 20140711
  Serious: No
  Sender: FDA-Public Use
  Company Number: US-ENDO PHARMACEUTICALS INC.-HCDA20120073

PATIENT
  Sex: Female

DRUGS (2)
  1. HYDROCODONE/ACETAMINOPHEN 10MG/325MG [Suspect]
     Indication: FIBROMYALGIA
     Dosage: 10MG/325MG
     Route: 048
     Dates: start: 201208
  2. HYDROCODONE/ACETAMINOPHEN 10MG/325MG [Suspect]
     Indication: PAIN

REACTIONS (2)
  - Intentional drug misuse [Unknown]
  - Drug ineffective [Not Recovered/Not Resolved]
